FAERS Safety Report 21733788 (Version 1)
Quarter: 2022Q4

REPORT INFORMATION
  Report Type: Report from Study
  Country: US (occurrence: US)
  Receive Date: 20221215
  Receipt Date: 20221215
  Transmission Date: 20230112
  Serious: Yes (Other)
  Sender: FDA-Public Use
  Company Number: US-TERSERA THERAPEUTICS LLC-2022TRS004200

PATIENT
  Age: 74 Year
  Sex: Female

DRUGS (10)
  1. XERMELO [Suspect]
     Active Substance: TELOTRISTAT ETHYL
     Indication: Carcinoid syndrome
     Dosage: 250 MG, TID WITH MEALS
     Route: 065
     Dates: start: 20220818
  2. SOMATULINE DEPOT [Suspect]
     Active Substance: LANREOTIDE ACETATE
     Indication: Product used for unknown indication
     Dosage: 120 MG, MONTHLY
     Route: 065
  3. SOMATULINE DEPOT [Suspect]
     Active Substance: LANREOTIDE ACETATE
     Dosage: 120 MG, MONTHLY
     Route: 065
     Dates: start: 20221003
  4. SOMATULINE DEPOT [Suspect]
     Active Substance: LANREOTIDE ACETATE
     Dosage: 120 MG, MONTHLY
     Route: 065
     Dates: start: 20221031
  5. ATORVASTATIN CALCIUM [Concomitant]
     Active Substance: ATORVASTATIN CALCIUM
     Indication: Product used for unknown indication
     Dosage: UNK, DAILY
  6. ALDACTAZIDE [Concomitant]
     Active Substance: HYDROCHLOROTHIAZIDE\SPIRONOLACTONE
     Indication: Product used for unknown indication
     Dosage: 25-25MG .5/ DAY
  7. CLARITIN [Concomitant]
     Active Substance: LORATADINE
     Indication: Product used for unknown indication
     Dosage: 10 MG, QD, (DAILY)
  8. ELIQUIS [Concomitant]
     Active Substance: APIXABAN
     Indication: Product used for unknown indication
     Dosage: 5 MG, BID
  9. CREON [Concomitant]
     Active Substance: PANCRELIPASE AMYLASE\PANCRELIPASE LIPASE\PANCRELIPASE PROTEASE
     Indication: Product used for unknown indication
     Dosage: UNK, PRN WITH FOOD/ SNACK
  10. PLAVIX [Concomitant]
     Active Substance: CLOPIDOGREL BISULFATE
     Indication: Product used for unknown indication
     Dosage: 75 MG, QD (DAILY)

REACTIONS (11)
  - Cerebral haemorrhage [Unknown]
  - Dizziness [Unknown]
  - Blood potassium decreased [Unknown]
  - Hepatic lesion [Unknown]
  - Musculoskeletal stiffness [Recovering/Resolving]
  - Appetite disorder [Recovering/Resolving]
  - Weight decreased [Recovering/Resolving]
  - Platelet count decreased [Unknown]
  - Blood glucose increased [Unknown]
  - Fatigue [Recovering/Resolving]
  - Flatulence [Not Recovered/Not Resolved]

NARRATIVE: CASE EVENT DATE: 20220923
